FAERS Safety Report 25915483 (Version 1)
Quarter: 2025Q4

REPORT INFORMATION
  Report Type: Spontaneous
  Country: EU (occurrence: EU)
  Receive Date: 20251013
  Receipt Date: 20251013
  Transmission Date: 20260119
  Serious: Yes (Life-Threatening, Other)
  Sender: GUERBET
  Company Number: None

PATIENT
  Age: 76 Year
  Sex: Female
  Weight: 90 kg

DRUGS (4)
  1. OPTIRAY 350 [Suspect]
     Active Substance: IOVERSOL
     Indication: Computerised tomogram abdomen
     Route: 042
     Dates: start: 20211004, end: 20211004
  2. NEXIUM [Concomitant]
     Active Substance: ESOMEPRAZOLE MAGNESIUM
     Indication: Product used for unknown indication
     Route: 042
     Dates: start: 20211004, end: 20211004
  3. CLEMASTINUM WZF 1 MG/ML [Concomitant]
     Indication: Product used for unknown indication
     Route: 042
     Dates: start: 20211004, end: 20211004
  4. HYDROCORTISONE SODIUM SUCCINATE [Concomitant]
     Active Substance: HYDROCORTISONE SODIUM SUCCINATE
     Indication: Product used for unknown indication
     Route: 042
     Dates: start: 20211004, end: 20211004

REACTIONS (5)
  - Loss of consciousness [Unknown]
  - Hyperhidrosis [Unknown]
  - Unresponsive to stimuli [Unknown]
  - Blood pressure decreased [Unknown]
  - Heart rate decreased [Unknown]

NARRATIVE: CASE EVENT DATE: 20211004
